FAERS Safety Report 11165009 (Version 2)
Quarter: 2015Q2

REPORT INFORMATION
  Report Type: Report from Study
  Country: IL (occurrence: IL)
  Receive Date: 20150604
  Receipt Date: 20150611
  Transmission Date: 20150821
  Serious: No
  Sender: FDA-Public Use
  Company Number: PHHO2015IL009691

PATIENT
  Age: 65 Year
  Sex: Female

DRUGS (2)
  1. ZOLEDRONATE [Suspect]
     Active Substance: ZOLEDRONIC ACID
     Indication: OVARIAN CANCER
     Dosage: 4 UNK
     Route: 041
     Dates: start: 20040808, end: 20071122
  2. FEMARA [Concomitant]
     Active Substance: LETROZOLE
     Indication: OVARIAN CANCER
     Dosage: 2.5 UNK
     Route: 048
     Dates: start: 20071123, end: 20100523

REACTIONS (1)
  - Seizure [Recovered/Resolved]

NARRATIVE: CASE EVENT DATE: 20070704
